FAERS Safety Report 7359913-3 (Version None)
Quarter: 2011Q1

REPORT INFORMATION
  Report Type: 
  Country: None (occurrence: None)
  Receive Date: 20110317
  Receipt Date: 20110307
  Transmission Date: 20110831
  Serious: Yes (Hospitalization)
  Sender: FDA-Public Use
  Company Number: FR-GENENTECH-314833

PATIENT
  Sex: Female

DRUGS (5)
  1. MINIRIN [Concomitant]
     Indication: PRODUCT USED FOR UNKNOWN INDICATION
     Dosage: 300 A?G, TID
  2. HYDROCORTISONE [Concomitant]
     Indication: PRODUCT USED FOR UNKNOWN INDICATION
     Dosage: 20 MG, QD
  3. SOMATROPIN RDNA [Suspect]
     Indication: HYPOPITUITARISM
     Dosage: 1.8 MG, 6/WEEK
     Route: 058
     Dates: start: 20100625
  4. LEVOTHYROXINE SODIUM [Concomitant]
     Indication: PRODUCT USED FOR UNKNOWN INDICATION
     Dosage: 200 A?G, UNK
  5. SOMATROPIN RDNA [Suspect]
     Indication: GROWTH HORMONE DEFICIENCY
     Dosage: 1.6 MG, 6/WEEK
     Route: 058
     Dates: start: 20060524, end: 20091021

REACTIONS (1)
  - OSTEOTOMY [None]
